FAERS Safety Report 5237679-0 (Version None)
Quarter: 2007Q1

REPORT INFORMATION
  Report Type: 
  Country: None (occurrence: None)
  Receive Date: 20070214
  Receipt Date: 20070201
  Transmission Date: 20070707
  Serious: Yes (Life-Threatening, Other)
  Sender: FDA-Public Use
  Company Number: GB-ELI_LILLY_AND_COMPANY-GB200702000148

PATIENT
  Age: 12 Year
  Sex: Male

DRUGS (1)
  1. FLUOXETINE [Suspect]
     Indication: ANXIETY
     Dosage: 20 MG, DAILY (1/D)
     Route: 048
     Dates: start: 20050601, end: 20061201

REACTIONS (2)
  - GASTRIC HAEMORRHAGE [None]
  - MALLORY-WEISS SYNDROME [None]
